FAERS Safety Report 7580721-2 (Version None)
Quarter: 2011Q2

REPORT INFORMATION
  Report Type: 
  Country: None (occurrence: None)
  Receive Date: 20110623
  Receipt Date: 20110613
  Transmission Date: 20111010
  Serious: Yes (Death, Other)
  Sender: FDA-Public Use
  Company Number: 200813970

PATIENT
  Sex: Male
  Weight: 59.8748 kg

DRUGS (26)
  1. ZANTAC [Concomitant]
  2. AMLODIPINE [Concomitant]
  3. AMOXICILLIN [Concomitant]
  4. GAS X (DIMETICONE, ACTIVATED) [Concomitant]
  5. ZEMAIRA [Suspect]
     Indication: ALPHA-1 ANTI-TRYPSIN DEFICIENCY
     Dosage: SEE IMAGE
     Route: 042
     Dates: start: 20110601
  6. ZEMAIRA [Suspect]
     Indication: ALPHA-1 ANTI-TRYPSIN DEFICIENCY
     Dosage: SEE IMAGE
     Route: 042
     Dates: start: 20080814, end: 20080814
  7. DOXYCYCLINE [Concomitant]
  8. PREDNISONE [Concomitant]
  9. OXYGEN (OXYGEN) [Concomitant]
  10. MIRALAX [Concomitant]
  11. CARDIZEM [Concomitant]
  12. TUMS (CALCIUM CARBONATE) [Concomitant]
  13. PULMICORT [Concomitant]
  14. HYDROCODONE (HYDROCODONE) [Concomitant]
  15. LORAZEPAM [Concomitant]
  16. NASAL SALINE (SODIUM CHLORIDE) [Concomitant]
  17. COMBIVENT [Concomitant]
  18. NYSTATIN [Concomitant]
  19. METAMUCIL (METAMUCIL /01430601/) [Concomitant]
  20. MULTIVITAMIN (MULTIVITAMIN /01229101/) [Concomitant]
  21. ACCOLATE [Concomitant]
  22. XALATAN [Concomitant]
  23. DUONEB [Concomitant]
  24. BACITRACIN [Concomitant]
  25. ZYRTEC [Concomitant]
  26. MUCINEX [Concomitant]

REACTIONS (8)
  - ILL-DEFINED DISORDER [None]
  - TINNITUS [None]
  - WRONG TECHNIQUE IN DRUG USAGE PROCESS [None]
  - TREMOR [None]
  - DISTURBANCE IN ATTENTION [None]
  - INSOMNIA [None]
  - ARTHRITIS [None]
  - MEDICAL DEVICE COMPLICATION [None]
